FAERS Safety Report 17901272 (Version 3)
Quarter: 2020Q3

REPORT INFORMATION
  Report Type: Spontaneous
  Country: ES (occurrence: ES)
  Receive Date: 20200616
  Receipt Date: 20200705
  Transmission Date: 20201103
  Serious: Yes (Other)
  Sender: FDA-Public Use
  Company Number: NVSC2020ES164416

PATIENT
  Age: 43 Year
  Sex: Male

DRUGS (8)
  1. AZITROMICINA [Suspect]
     Active Substance: AZITHROMYCIN DIHYDRATE
     Indication: CORONAVIRUS INFECTION
  2. CEFTRIAXONA [Suspect]
     Active Substance: CEFTRIAXONE
     Indication: CORONAVIRUS INFECTION
     Dosage: 2 G, QD
     Route: 042
     Dates: start: 20200326, end: 20200402
  3. AZITROMICINA [Suspect]
     Active Substance: AZITHROMYCIN DIHYDRATE
     Indication: PNEUMONIA
     Dosage: 500 MG, Q24H
     Route: 048
     Dates: start: 20200325, end: 20200329
  4. HYDROXYCHLOROQUINE [Suspect]
     Active Substance: HYDROXYCHLOROQUINE
     Indication: PNEUMONIA
  5. TOCILIZUMAB. [Suspect]
     Active Substance: TOCILIZUMAB
     Indication: CORONAVIRUS INFECTION
  6. HYDROXYCHLOROQUINE [Suspect]
     Active Substance: HYDROXYCHLOROQUINE
     Indication: CORONAVIRUS INFECTION
     Dosage: 200 MG, Q12H
     Route: 048
     Dates: start: 20200325, end: 20200331
  7. TOCILIZUMAB. [Suspect]
     Active Substance: TOCILIZUMAB
     Indication: PNEUMONIA
     Dosage: 2 DF, UNKNOWN (TOTAL)
     Route: 042
     Dates: start: 20200328, end: 20200330
  8. CEFTRIAXONA [Suspect]
     Active Substance: CEFTRIAXONE
     Indication: PNEUMONIA

REACTIONS (1)
  - Hepatitis [Recovering/Resolving]

NARRATIVE: CASE EVENT DATE: 20200402
